FAERS Safety Report 4439626-8 (Version None)
Quarter: 2004Q3

REPORT INFORMATION
  Report Type: 
  Country: None (occurrence: None)
  Receive Date: 20040831
  Receipt Date: 20040831
  Transmission Date: 20050211
  Serious: Yes (Death, Hospitalization)
  Sender: FDA-Public Use
  Company Number: None

PATIENT
  Sex: Male
  Weight: 70.3075 kg

DRUGS (8)
  1. ERBITUX 2MG/ML BRISTOL-MYERS SQUIBB [Suspect]
     Indication: COLORECTAL CANCER METASTATIC
     Dosage: 430 MG WEEKLY INTRAVENOUS
     Route: 042
     Dates: start: 20040628, end: 20040817
  2. FLUOROURACIL [Suspect]
     Indication: COLORECTAL CANCER METASTATIC
     Dosage: 4128 EVERY 2 WE INTRAVENOUS
     Route: 042
     Dates: start: 20040628, end: 20040819
  3. OXALIPLATIN [Concomitant]
  4. LEUCOVORIN CALCIUM [Concomitant]
  5. GLUCOPHAGE [Concomitant]
  6. GLUCOTROL [Concomitant]
  7. ACCUPRIL [Concomitant]
  8. COUMADIN [Concomitant]

REACTIONS (17)
  - AORTIC DISSECTION [None]
  - BACK PAIN [None]
  - BLOOD PRESSURE DECREASED [None]
  - CENTRAL LINE INFECTION [None]
  - COLORECTAL CANCER [None]
  - CYANOSIS [None]
  - EMOTIONAL DISTRESS [None]
  - EXTRADURAL ABSCESS [None]
  - HEART RATE DECREASED [None]
  - HYPOAESTHESIA [None]
  - MALIGNANT NEOPLASM PROGRESSION [None]
  - MENTAL STATUS CHANGES [None]
  - MYOCARDIAL INFARCTION [None]
  - OXYGEN SATURATION DECREASED [None]
  - SEDATION [None]
  - SPINAL CORD COMPRESSION [None]
  - TENDERNESS [None]
